FAERS Safety Report 8191949-5 (Version None)
Quarter: 2012Q1

REPORT INFORMATION
  Report Type: 
  Country: None (occurrence: None)
  Receive Date: 20120307
  Receipt Date: 20120302
  Transmission Date: 20120608
  Serious: Yes (Death, Hospitalization)
  Sender: FDA-Public Use
  Company Number: US-PFIZER INC-2012057515

PATIENT
  Sex: Male
  Weight: 108.6 kg

DRUGS (50)
  1. VANCOMYCIN HCL [Suspect]
     Dosage: 200 ML
     Route: 042
     Dates: start: 20110818
  2. PANTOPRAZOLE [Concomitant]
     Dosage: 40 MG, UNK
     Route: 048
     Dates: start: 20110819
  3. FERROUS SULFATE [Concomitant]
     Dosage: 300 MG, 2X/DAY
     Route: 048
     Dates: start: 20110821, end: 20110823
  4. TAMSULOSIN [Concomitant]
     Dosage: 0.4 MG, 1X/DAY
     Route: 048
     Dates: start: 20110822
  5. PHYTONADIONE [Concomitant]
     Dosage: 10 MG, 1X/DAY
     Route: 030
     Dates: start: 20110819, end: 20110822
  6. ETOMIDATE [Concomitant]
     Dosage: 20 MG, UNK
     Dates: start: 20110820
  7. HYDROMORPHONE [Concomitant]
     Dosage: 2 MG, EVERY 3 HOURS AS NEEDED
     Route: 042
     Dates: start: 20110820, end: 20110822
  8. LIDOCAINE [Concomitant]
     Dosage: 20 ML, UNK
     Dates: start: 20110820, end: 20110821
  9. LEVOTHYROXINE [Concomitant]
     Dosage: UNK
     Route: 048
     Dates: start: 20110819, end: 20110823
  10. MULTIVITAMIN [Concomitant]
     Dosage: UNK
     Route: 048
     Dates: start: 20110819
  11. PHYTONADIONE [Concomitant]
     Dosage: 10 MG, 1X/DAY
     Route: 058
     Dates: start: 20110820, end: 20110822
  12. FENTANYL [Concomitant]
     Dosage: 55 ML, AS NEEDED
     Route: 042
     Dates: start: 20110819, end: 20110823
  13. HEPARIN [Concomitant]
     Dosage: UNK
     Route: 042
     Dates: start: 20110820, end: 20110821
  14. FLUCONAZOLE [Concomitant]
     Dosage: 100 ML, UNK
     Route: 042
     Dates: start: 20110821, end: 20110823
  15. FLUCONAZOLE [Concomitant]
     Dosage: 50 ML, 1X/DAY
     Route: 042
     Dates: start: 20110822, end: 20110823
  16. SODIUM BICARBONATE [Concomitant]
     Dosage: 100 MILLIEQUIVALENTS
     Route: 042
     Dates: start: 20110822
  17. VECURONIUM [Concomitant]
     Dosage: 2 MG, EVERY 4 HOURS AS NEEDED
     Route: 042
     Dates: start: 20110822
  18. ALBUTEROL [Concomitant]
     Dosage: 2.5 MG, INH
     Dates: start: 20110819, end: 20110824
  19. IPRATROPIUM [Concomitant]
     Dosage: 0.5 MG, AS NEEDED, INH
     Dates: start: 20110819, end: 20110822
  20. ALPRAZOLAM [Concomitant]
     Dosage: 0.25 MG, 2X/DAY AS NEEDED
     Route: 048
     Dates: start: 20110819, end: 20110820
  21. LACTULOSE [Concomitant]
     Dosage: 20 G, 3X/DAY
     Route: 048
     Dates: start: 20110819, end: 20110821
  22. IRON/MULTIMINERALS/MULTIVITAMINS [Concomitant]
     Dosage: UNK
     Route: 048
     Dates: start: 20110819, end: 20110820
  23. IRON/MULTIMINERALS/MULTIVITAMINS [Concomitant]
     Dosage: UNK
     Route: 048
     Dates: start: 20110822
  24. SENNA [Concomitant]
     Dosage: 374 MG, 1X/DAY
     Route: 048
     Dates: start: 20110819, end: 20110823
  25. TRAMADOL [Concomitant]
     Dosage: 50 MG, 2X/DAY, PC
     Dates: start: 20110819, end: 20110823
  26. NOVOLIN R [Concomitant]
     Dosage: UNK
     Route: 058
     Dates: start: 20110823
  27. DEXTROSE [Concomitant]
     Dosage: 12.5 G, AS NEEDED
     Route: 042
     Dates: start: 20110821
  28. FUROSEMIDE [Concomitant]
     Dosage: 60 MG, 1X/DAY
     Route: 042
     Dates: start: 20110819, end: 20110819
  29. ENOXAPARIN [Concomitant]
     Dosage: 80 MG, 1X/DAY
     Route: 058
     Dates: start: 20110819
  30. MIDAZOLAM [Concomitant]
     Dosage: 50 ML, AS NEEDED
     Route: 042
     Dates: start: 20110819, end: 20110821
  31. FENTANYL [Concomitant]
     Dosage: 55 ML, AS NEEDED
     Route: 042
     Dates: start: 20110822, end: 20110823
  32. LINEZOLID [Concomitant]
     Dosage: 300 ML 1IN 12 HOURS
     Route: 042
     Dates: start: 20110819, end: 20110821
  33. LORAZEPAM [Concomitant]
     Dosage: 100 ML, AS NEEDED
     Route: 042
     Dates: start: 20110822, end: 20110823
  34. CEFTRIAXON [Suspect]
     Dosage: 50 ML
     Route: 042
     Dates: start: 20110819
  35. TAMSULOSIN [Concomitant]
     Dosage: 0.4 MG, 1X/DAY
     Route: 048
     Dates: start: 20110819
  36. PIPERACILLIN AND TAZOBACTAM [Concomitant]
     Dosage: 100 ML, 1 IN 12HOURS
     Route: 042
     Dates: start: 20110819, end: 20110824
  37. WATER FOR INJECTION [Concomitant]
     Dosage: 10 ML, UNK
     Dates: start: 20110820
  38. SODIUM BICARBONATE [Concomitant]
     Dosage: 50 MILLIEQUIVALENTS
     Route: 042
     Dates: start: 20110823
  39. VANCOMYCIN HCL [Suspect]
     Dosage: 400 ML (200 ML, 2 IN 1 D)
     Route: 042
     Dates: start: 20110819
  40. SODIUM CHLORIDE [Concomitant]
     Dosage: 0.9% INJECTION
     Route: 042
     Dates: start: 20110818, end: 20110823
  41. PANTOPRAZOLE [Concomitant]
     Dosage: 40 MG, 1X/DAY
     Route: 042
     Dates: start: 20110822, end: 20110823
  42. ASCORBIC ACID [Concomitant]
     Dosage: 500 MG, 1 IN 1 D
     Route: 048
     Dates: start: 20110819
  43. CALCIUM [Concomitant]
     Dosage: 500 MG, 2X/DAY
     Route: 048
     Dates: start: 20110819, end: 20110823
  44. ACETAMINOPHEN [Concomitant]
     Dosage: 650 MG, 1 IN 4 HOURS, PER RECTAL
     Dates: start: 20110818
  45. NOREPINEPHRINE [Concomitant]
     Dosage: 250 ML, AS NEEDED
     Route: 042
     Dates: start: 20110821, end: 20110823
  46. PHENYLEPHRINE [Concomitant]
     Dosage: 250 ML, UNK
     Route: 042
     Dates: start: 20110822, end: 20110824
  47. FERROUS SULFATE [Concomitant]
     Dosage: 325 MG, 2X/DAY
     Route: 048
     Dates: start: 20110819, end: 20110820
  48. NOVOLIN R [Concomitant]
     Dosage: UNK
     Route: 058
     Dates: start: 20110818
  49. SUCCINYLCHOLINE CHLORIDE [Concomitant]
     Dosage: 200 MG, UNK
     Dates: start: 20110820
  50. THIAMINE [Concomitant]
     Dosage: 101.2 ML, 1X/DAY
     Route: 042
     Dates: start: 20110824, end: 20110824

REACTIONS (3)
  - RENAL FAILURE [None]
  - SEPSIS [None]
  - THROMBOCYTOPENIA [None]
